FAERS Safety Report 26063530 (Version 1)
Quarter: 2025Q4

REPORT INFORMATION
  Report Type: Spontaneous
  Country: US (occurrence: None)
  Receive Date: 20251118
  Receipt Date: 20251118
  Transmission Date: 20260118
  Serious: Yes (Life-Threatening, Hospitalization, Other)
  Sender: FDA-CTU
  Company Number: None

PATIENT
  Age: 32 Year
  Sex: Male
  Weight: 93.9 kg

DRUGS (3)
  1. CEFAZOLIN [Suspect]
     Active Substance: CEFAZOLIN
     Indication: Preoperative care
     Dosage: OTHER FREQUENCY : ONCE;?
     Route: 042
     Dates: start: 20251016, end: 20251016
  2. CEFAZOLIN [Suspect]
     Active Substance: CEFAZOLIN
     Indication: Prophylaxis
  3. CEFAZOLIN [Suspect]
     Active Substance: CEFAZOLIN
     Indication: Orchidectomy

REACTIONS (7)
  - Infusion related reaction [None]
  - Hypoxia [None]
  - Tidal volume decreased [None]
  - Procedural complication [None]
  - Hypotension [None]
  - Bradycardia [None]
  - Anaphylactic reaction [None]

NARRATIVE: CASE EVENT DATE: 20251016
